FAERS Safety Report 6813719-X (Version None)
Quarter: 2010Q3

REPORT INFORMATION
  Report Type: 
  Country: None (occurrence: None)
  Receive Date: 20100701
  Receipt Date: 20100621
  Transmission Date: 20110219
  Serious: Yes (Hospitalization)
  Sender: FDA-Public Use
  Company Number: PL-GENENTECH-303326

PATIENT
  Sex: Female
  Weight: 55 kg

DRUGS (1)
  1. LUCENTIS [Suspect]
     Indication: MACULAR DEGENERATION
     Dosage: 0.5 MG, SINGLE
     Route: 031
     Dates: start: 20100115

REACTIONS (1)
  - ISCHAEMIC STROKE [None]
